FAERS Safety Report 5336314-0 (Version None)
Quarter: 2007Q2

REPORT INFORMATION
  Report Type: 
  Country: None (occurrence: None)
  Receive Date: 20070523
  Receipt Date: 20070515
  Transmission Date: 20071010
  Serious: Yes (Other)
  Sender: FDA-Public Use
  Company Number: 2007SP009573

PATIENT
  Age: 63 Year
  Sex: Male

DRUGS (1)
  1. INTRON A [Suspect]
     Indication: NEOPLASM MALIGNANT
     Dosage: 10 MIU; TIW;
     Dates: start: 20060101

REACTIONS (3)
  - NAUSEA [None]
  - NEOPLASM MALIGNANT [None]
  - PARKINSON'S DISEASE [None]
